FAERS Safety Report 8029409-4 (Version None)
Quarter: 2012Q1

REPORT INFORMATION
  Report Type: 
  Country: None (occurrence: None)
  Receive Date: 20120106
  Receipt Date: 20111228
  Transmission Date: 20120608
  Serious: Yes (Hospitalization)
  Sender: FDA-Public Use
  Company Number: JP-ASTRAZENECA-2012SE00274

PATIENT
  Age: 91 Year
  Sex: Female

DRUGS (8)
  1. METFORMIN HCL [Concomitant]
     Indication: DIABETES MELLITUS
     Route: 048
     Dates: end: 20110201
  2. PANTOPRAZOLE SODIUM [Concomitant]
     Route: 048
  3. VESICARE [Concomitant]
     Route: 048
  4. NORFLOXACIN [Suspect]
     Indication: URINARY TRACT INFECTION
     Route: 048
     Dates: start: 20110217, end: 20110221
  5. CANDESARTAN CILEXETIL/HYDROCHLOROTHIAZIDE [Interacting]
     Indication: PRODUCT USED FOR UNKNOWN INDICATION
     Dosage: EVERY DAY
     Route: 048
     Dates: end: 20110201
  6. GLIMEPIRIDE [Interacting]
     Indication: DIABETES MELLITUS
     Route: 048
     Dates: end: 20110201
  7. ATORVASTATIN CALCIUM [Concomitant]
     Route: 048
  8. ASPIRIN [Concomitant]
     Route: 048

REACTIONS (4)
  - HYPONATRAEMIA [None]
  - DRUG INTERACTION [None]
  - METABOLIC ENCEPHALOPATHY [None]
  - CONVULSION [None]
